FAERS Safety Report 16249434 (Version 1)
Quarter: 2019Q2

REPORT INFORMATION
  Report Type: Spontaneous
  Country: ES (occurrence: ES)
  Receive Date: 20190429
  Receipt Date: 20190429
  Transmission Date: 20190711
  Serious: Yes (Other)
  Sender: FDA-Public Use
  Company Number: ES-TEVA-2019-ES-1041998

PATIENT
  Age: 48 Year
  Sex: Female

DRUGS (5)
  1. BISOLVON [Concomitant]
     Active Substance: BROMHEXINE HYDROCHLORIDE
     Dosage: NOT RECORDED IN ELECTRONIC MEDICAL HISTORY
     Route: 048
  2. CINFATOS [Concomitant]
     Dosage: NOT RECORDED IN ELECTRONIC MEDICAL HISTORY
     Route: 048
     Dates: start: 2018
  3. IBUPROFEN. [Suspect]
     Active Substance: IBUPROFEN
     Dosage: NOT RECORDED IN ELECTRONIC MEDICAL HISTORY
     Route: 048
     Dates: start: 2018
  4. ENALAPRIL 5 MG 60 COMPRIMIDOS [Concomitant]
     Active Substance: ENALAPRIL
     Indication: HYPERTENSION
     Dosage: 1 EVERY 24 HOURS
     Route: 048
     Dates: start: 2018
  5. VINCIGRIP [Concomitant]
     Dosage: NOT RECORDED IN ELECTRONIC MEDICAL HISTORY
     Route: 048

REACTIONS (1)
  - Toxic skin eruption [Recovered/Resolved]

NARRATIVE: CASE EVENT DATE: 2018
